FAERS Safety Report 16163820 (Version 10)
Quarter: 2019Q4

REPORT INFORMATION
  Report Type: Spontaneous
  Country: US (occurrence: US)
  Receive Date: 20190405
  Receipt Date: 20191120
  Transmission Date: 20200122
  Serious: Yes (Other)
  Sender: FDA-Public Use
  Company Number: US-BIOGEN-2019BI00718461

PATIENT
  Age: 44 Year
  Sex: Female

DRUGS (1)
  1. TYSABRI [Suspect]
     Active Substance: NATALIZUMAB
     Indication: MULTIPLE SCLEROSIS
     Dosage: INFUSED FOR OVER 1 HOUR
     Route: 042
     Dates: start: 20190325

REACTIONS (18)
  - Heart rate decreased [Unknown]
  - Product dose omission [Unknown]
  - Pain in extremity [Unknown]
  - Lethargy [Not Recovered/Not Resolved]
  - Multiple allergies [Unknown]
  - Body temperature decreased [Unknown]
  - Hypersensitivity [Recovered/Resolved]
  - Nerve compression [Unknown]
  - Myalgia [Unknown]
  - Burning sensation [Unknown]
  - Multiple sclerosis relapse [Recovered/Resolved]
  - Stress [Unknown]
  - Hot flush [Recovered/Resolved with Sequelae]
  - Fatigue [Not Recovered/Not Resolved]
  - Diabetes mellitus [Not Recovered/Not Resolved]
  - Multiple sclerosis [Not Recovered/Not Resolved]
  - Somnolence [Recovered/Resolved]
  - Muscle spasms [Recovered/Resolved]

NARRATIVE: CASE EVENT DATE: 2019
